FAERS Safety Report 8383355 (Version 2)
Quarter: 2013Q2

REPORT INFORMATION
  Report Type: Spontaneous
  Country: US (occurrence: US)
  Receive Date: 20120201
  Receipt Date: 20130502
  Transmission Date: 20140414
  Serious: Yes (Hospitalization)
  Sender: FDA-Public Use
  Company Number: US-GLAXOSMITHKLINE-A0928831A

PATIENT
  Age: 69 Year
  Sex: Male

DRUGS (1)
  1. AVANDIA [Suspect]
     Indication: DIABETES MELLITUS
     Dosage: 6MG PER DAY
     Route: 048
     Dates: start: 1999, end: 20071011

REACTIONS (3)
  - Cardiac failure congestive [Not Recovered/Not Resolved]
  - Atrioventricular block complete [Unknown]
  - Ischaemic cardiomyopathy [Unknown]
